FAERS Safety Report 7191848-1 (Version None)
Quarter: 2010Q4

REPORT INFORMATION
  Report Type: 
  Country: None (occurrence: None)
  Receive Date: 20101223
  Receipt Date: 20101217
  Transmission Date: 20110411
  Serious: Yes (Other)
  Sender: FDA-Public Use
  Company Number: US-PFIZER INC-2010174840

PATIENT
  Sex: Female

DRUGS (1)
  1. GEODON [Suspect]
     Dosage: UNK
     Route: 048

REACTIONS (7)
  - ALOPECIA [None]
  - BODY DYSMORPHIC DISORDER [None]
  - CARDIAC DISORDER [None]
  - FLUID RETENTION [None]
  - LOSS OF CONSCIOUSNESS [None]
  - SKIN WRINKLING [None]
  - WEIGHT INCREASED [None]
